FAERS Safety Report 16799408 (Version 1)
Quarter: 2019Q3

REPORT INFORMATION
  Report Type: Spontaneous
  Country: JP (occurrence: JP)
  Receive Date: 20190912
  Receipt Date: 20190912
  Transmission Date: 20191005
  Serious: Yes (Other)
  Sender: FDA-Public Use
  Company Number: JP-PFIZER INC-2019387542

PATIENT
  Sex: Female

DRUGS (1)
  1. ZITHROMAC 250MG [Suspect]
     Active Substance: AZITHROMYCIN DIHYDRATE
     Indication: PERIODONTAL DISEASE
     Dosage: 250 MG, UNK

REACTIONS (8)
  - Nausea [Unknown]
  - Liver disorder [Unknown]
  - Gallbladder disorder [Unknown]
  - Feeling abnormal [Unknown]
  - Blood bilirubin increased [Unknown]
  - Muscle spasms [Unknown]
  - Diarrhoea [Unknown]
  - Abdominal pain [Unknown]
